FAERS Safety Report 7186163-6 (Version None)
Quarter: 2010Q4

REPORT INFORMATION
  Report Type: 
  Country: None (occurrence: None)
  Receive Date: 20101222
  Receipt Date: 20100616
  Transmission Date: 20110411
  Serious: No
  Sender: FDA-Public Use
  Company Number: US-AMGEN-KDL418710

PATIENT

DRUGS (12)
  1. ENBREL [Suspect]
     Indication: PRODUCT USED FOR UNKNOWN INDICATION
     Dosage: 25 MG, 2 TIMES/WK
     Route: 058
  2. FINASTERIDE [Concomitant]
     Dosage: 5 MG, UNK
  3. METHOTREXATE [Concomitant]
     Dosage: 2.5 MG, UNK
  4. PREDNISONE [Concomitant]
     Dosage: 1 MG, UNK
  5. LOVASTATIN [Concomitant]
     Dosage: 20 MG, UNK
  6. CIMETIDINE [Concomitant]
     Dosage: 400 MG, UNK
  7. FOLIC ACID [Concomitant]
     Dosage: 1 MG, UNK
  8. WARFARIN [Concomitant]
     Dosage: 5 MG, UNK
  9. MULTI-VITAMINS [Concomitant]
     Dosage: UNK UNK, UNK
  10. TAMSULOSIN HCL [Concomitant]
     Dosage: .4 MG, UNK
  11. COLECALCIFEROL [Concomitant]
     Dosage: 1000 IU, UNK
  12. GLUCOSAMINE [Concomitant]
     Dosage: 1000 MG, UNK

REACTIONS (6)
  - HYPERSENSITIVITY [None]
  - INJECTION SITE ERYTHEMA [None]
  - INJECTION SITE INFECTION [None]
  - INJECTION SITE PRURITUS [None]
  - INJECTION SITE REACTION [None]
  - INJECTION SITE WARMTH [None]
